FAERS Safety Report 7997977-4 (Version None)
Quarter: 2011Q4

REPORT INFORMATION
  Report Type: 
  Country: None (occurrence: None)
  Receive Date: 20111221
  Receipt Date: 20111213
  Transmission Date: 20120403
  Serious: Yes (Hospitalization)
  Sender: FDA-Public Use
  Company Number: US-BAYER-2011-031852

PATIENT
  Age: 36 Year
  Sex: Female
  Weight: 100.23 kg

DRUGS (6)
  1. ALKA-SELTZER [Concomitant]
     Indication: PAIN
     Dosage: 50 MG, TID
     Route: 048
     Dates: start: 20090324
  2. MECLIZINE [Concomitant]
     Indication: DIZZINESS
     Dosage: 25 MG, QID
     Route: 048
     Dates: start: 20090324
  3. AMOXICILLIN [Concomitant]
     Dosage: 250 MG, TID
     Route: 048
  4. YAZ [Suspect]
     Indication: CONTRACEPTION
     Dosage: UNK
     Dates: start: 20080701, end: 20091101
  5. ALBUTEROL [Concomitant]
     Route: 045
  6. JUNEL 1.5/30 [Concomitant]
     Dosage: UNK
     Dates: start: 20100101

REACTIONS (8)
  - CHOLECYSTITIS CHRONIC [None]
  - BILE DUCT STONE [None]
  - JAUNDICE [None]
  - ABDOMINAL PAIN [None]
  - ANXIETY [None]
  - CHOLELITHIASIS [None]
  - INJURY [None]
  - PAIN [None]
